FAERS Safety Report 6546794-0 (Version None)
Quarter: 2010Q1

REPORT INFORMATION
  Report Type: 
  Country: None (occurrence: None)
  Receive Date: 20100119
  Receipt Date: 20100104
  Transmission Date: 20100710
  Serious: No
  Sender: FDA-Public Use
  Company Number: 2010AC000010

PATIENT
  Age: 65 Year
  Sex: Male
  Weight: 94.3482 kg

DRUGS (19)
  1. DIGOXIN [Suspect]
     Dosage: .25 MG; QD; PO
     Route: 048
     Dates: start: 20080201
  2. XOPENEX [Concomitant]
  3. ATROVENT [Concomitant]
  4. SOLU-MEDROL [Concomitant]
  5. FUROSEMIDE [Concomitant]
  6. OMEPRAZOLE [Concomitant]
  7. WARFARIN SODIUM [Concomitant]
  8. CARVEDILOL [Concomitant]
  9. ISOSORBIDE [Concomitant]
  10. TRAZODONE HCL [Concomitant]
  11. LYRICA [Concomitant]
  12. LOVASTATIN [Concomitant]
  13. LISINOPRIL [Concomitant]
  14. ADVAIR [Concomitant]
  15. LANTUS [Concomitant]
  16. APRIDA [Concomitant]
  17. PREDNISONE [Concomitant]
  18. SINGULAIR [Concomitant]
  19. ZAROXOLYN [Concomitant]

REACTIONS (11)
  - ANHEDONIA [None]
  - ANXIETY [None]
  - CARDIAC FAILURE CONGESTIVE [None]
  - CHRONIC OBSTRUCTIVE PULMONARY DISEASE [None]
  - CONDITION AGGRAVATED [None]
  - DIABETES MELLITUS INADEQUATE CONTROL [None]
  - HYPERTENSION [None]
  - MULTIPLE INJURIES [None]
  - NEPHROLITHIASIS [None]
  - UNEVALUABLE EVENT [None]
  - URTICARIA [None]
